FAERS Safety Report 4473678-4 (Version None)
Quarter: 2004Q3

REPORT INFORMATION
  Report Type: 
  Country: None (occurrence: None)
  Receive Date: 20040910
  Receipt Date: 20040514
  Transmission Date: 20050211
  Serious: Yes (Other)
  Sender: FDA-Public Use
  Company Number: 2004213592US

PATIENT

DRUGS (1)
  1. BEXTRA [Suspect]
     Dosage: ORAL
     Route: 048

REACTIONS (1)
  - LIVER FUNCTION TEST ABNORMAL [None]
